FAERS Safety Report 6060557-4 (Version None)
Quarter: 2009Q1

REPORT INFORMATION
  Report Type: 
  Country: None (occurrence: None)
  Receive Date: 20090202
  Receipt Date: 20090129
  Transmission Date: 20090719
  Serious: Yes (Death)
  Sender: FDA-Public Use
  Company Number: FI-JNJFOC-20090106975

PATIENT
  Age: 30 Year
  Sex: Male

DRUGS (6)
  1. RISPERDAL CONSTA [Suspect]
     Indication: SCHIZOPHRENIA
     Dosage: THE PATIENT HAD RECEIVED TWO INJECTIONS OF RISPERIDONE (LAI) MICROSPHERES
     Route: 030
  2. RISPERDAL [Suspect]
     Indication: SCHIZOPHRENIA
     Route: 048
  3. NULYTELY [Concomitant]
     Route: 065
  4. IPSATOL [Concomitant]
     Route: 065
  5. DIAPAM [Concomitant]
     Route: 065
  6. ZYPREXA [Concomitant]
     Route: 065

REACTIONS (1)
  - COMPLETED SUICIDE [None]
